FAERS Safety Report 10261866 (Version 1)
Quarter: 2014Q2

REPORT INFORMATION
  Report Type: Spontaneous
  Country: JP (occurrence: JP)
  Receive Date: 20140626
  Receipt Date: 20140626
  Transmission Date: 20141212
  Serious: Yes (Other)
  Sender: FDA-Public Use
  Company Number: PHHY2014JP074696

PATIENT
  Age: 52 Year
  Sex: Female

DRUGS (5)
  1. METHOTREXATE [Suspect]
     Indication: POLYARTHRITIS
     Dosage: 8 MG, UNK
     Dates: start: 200903
  2. TOCILIZUMAB [Suspect]
     Indication: POLYARTHRITIS
     Dosage: 8 MG/KG, UNK
     Dates: start: 200903
  3. PREDNISOLONE [Concomitant]
     Indication: POLYARTHRITIS
     Dosage: 10 MG, UNK
     Dates: start: 200903
  4. PREDNISOLONE [Concomitant]
     Dosage: 5 MG, UNK
  5. PREDNISOLONE [Concomitant]
     Dosage: 2.5 MG, UNK

REACTIONS (1)
  - T-cell type acute leukaemia [Recovered/Resolved]
